FAERS Safety Report 6801712-2 (Version None)
Quarter: 2010Q2

REPORT INFORMATION
  Report Type: 
  Country: None (occurrence: None)
  Receive Date: 20100629
  Receipt Date: 20100623
  Transmission Date: 20101027
  Serious: Yes (Other)
  Sender: FDA-Public Use
  Company Number: TR-ABBOTT-10P-161-0650542-00

PATIENT
  Age: 24 Year
  Sex: Female

DRUGS (1)
  1. LUCRIN DEPOT 3.75 MG [Suspect]
     Indication: MYOMECTOMY
     Route: 042
     Dates: start: 20100501

REACTIONS (1)
  - VAGINAL HAEMORRHAGE [None]
